FAERS Safety Report 5268854-7 (Version None)
Quarter: 2007Q1

REPORT INFORMATION
  Report Type: 
  Country: None (occurrence: None)
  Receive Date: 20061213
  Receipt Date: 20031023
  Transmission Date: 20070707
  Serious: Yes (Other)
  Sender: FDA-Public Use
  Company Number: 2003UW13873

PATIENT
  Sex: Female

DRUGS (5)
  1. IRESSA [Suspect]
     Indication: NON-SMALL CELL LUNG CANCER
     Dosage: 250 MG QD PO
     Route: 048
  2. LOTENSIN [Concomitant]
  3. DECADRON [Concomitant]
  4. COUMADIN [Concomitant]
  5. ZANTAC [Concomitant]

REACTIONS (1)
  - HAEMOGLOBIN INCREASED [None]
